FAERS Safety Report 23567122 (Version 1)
Quarter: 2024Q1

REPORT INFORMATION
  Report Type: Spontaneous
  Country: NO (occurrence: NO)
  Receive Date: 20240226
  Receipt Date: 20240226
  Transmission Date: 20240410
  Serious: Yes (Other)
  Sender: FDA-Public Use
  Company Number: None

PATIENT
  Age: 44 Year
  Sex: Female

DRUGS (2)
  1. NAPROXEN [Suspect]
     Active Substance: NAPROXEN
     Indication: Inflammation
     Dosage: UNK (GASTRO-RESISTANT TABLET)
     Route: 048
     Dates: start: 2022, end: 2023
  2. NAPROXEN [Suspect]
     Active Substance: NAPROXEN
     Indication: Ligament sprain

REACTIONS (3)
  - Gastric ulcer [Recovering/Resolving]
  - Diaphragmalgia [Unknown]
  - Pain [Unknown]
